FAERS Safety Report 7438427-6 (Version None)
Quarter: 2011Q2

REPORT INFORMATION
  Report Type: 
  Country: None (occurrence: None)
  Receive Date: 20110418
  Receipt Date: 20110404
  Transmission Date: 20111010
  Serious: Yes (Death, Hospitalization)
  Sender: FDA-Public Use
  Company Number: 2008-01449

PATIENT
  Age: 63 Year
  Sex: Female
  Weight: 56 kg

DRUGS (8)
  1. MAGMITT (MAGNESIUM OXIDE) [Concomitant]
  2. ALLOPURINOL [Concomitant]
  3. COTRIM [Concomitant]
  4. SELBEX (TEPRENONE) [Concomitant]
  5. MICARDIS [Concomitant]
  6. HYDROCORTISONE SODIUM SUCCINATE [Concomitant]
  7. VELCADE [Suspect]
     Indication: MULTIPLE MYELOMA
     Dosage: 1.9 MG, INTRAVENOUS
     Route: 042
     Dates: start: 20070904, end: 20070928
  8. BONALON /01220301/ (ALENDRONIC ACID) [Concomitant]

REACTIONS (6)
  - PLASMACYTOMA [None]
  - HYPOAESTHESIA [None]
  - MULTIPLE MYELOMA [None]
  - VARICELLA [None]
  - LEUKOPENIA [None]
  - DISEASE PROGRESSION [None]
